FAERS Safety Report 6520542-2 (Version None)
Quarter: 2009Q4

REPORT INFORMATION
  Report Type: 
  Country: None (occurrence: None)
  Receive Date: 20091229
  Receipt Date: 20091214
  Transmission Date: 20100525
  Serious: Yes (Other)
  Sender: FDA-Public Use
  Company Number: DE-PFIZER INC-2009309634

PATIENT
  Age: 43 Year
  Sex: Female
  Weight: 58 kg

DRUGS (2)
  1. LYRICA [Suspect]
     Indication: NEURALGIA
     Dosage: UNK
     Route: 048
     Dates: start: 20070101
  2. ASPIRIN [Concomitant]
     Indication: PLATELET AGGREGATION INHIBITION
     Dosage: 100 MG, 1X/DAY
     Route: 048
     Dates: start: 20070101

REACTIONS (7)
  - AREFLEXIA [None]
  - CARDIOVASCULAR DISORDER [None]
  - FALL [None]
  - MEMORY IMPAIRMENT [None]
  - NEURALGIA [None]
  - SPEECH DISORDER [None]
  - SYNCOPE [None]
